FAERS Safety Report 4585773-X (Version None)
Quarter: 2005Q1

REPORT INFORMATION
  Report Type: 
  Country: None (occurrence: None)
  Receive Date: 20050128
  Receipt Date: 20050128
  Transmission Date: 20050727
  Serious: Yes (Life-Threatening)
  Sender: FDA-Public Use
  Company Number: None

PATIENT
  Age: 11 Day
  Sex: Male
  Weight: 2.9 kg

DRUGS (7)
  1. NA BENZOATE/NA 100 MG/ML UCYCLYD [Suspect]
     Indication: HYPERGLYCAEMIA
     Dosage: 700 MG X 1 OVER 9 ORAL
     Route: 048
     Dates: start: 20050122, end: 20050122
  2. LEVOCARNITINE [Concomitant]
  3. METOCLOPRAMIDE [Concomitant]
  4. DOBUTAMINE HCL [Concomitant]
  5. MIDAZOLAM HCL [Concomitant]
  6. DOPAMINE [Concomitant]
  7. PENTOBARBITAL CAP [Concomitant]

REACTIONS (5)
  - ABDOMINAL DISTENSION [None]
  - BLOOD POTASSIUM INCREASED [None]
  - CARDIAC ARREST [None]
  - NECROTISING COLITIS [None]
  - PNEUMATOSIS [None]
